FAERS Safety Report 9966784 (Version 1)
Quarter: 2014Q1

REPORT INFORMATION
  Report Type: Report from Study
  Country: US (occurrence: US)
  Receive Date: 20140305
  Receipt Date: 20140305
  Transmission Date: 20141002
  Serious: No
  Sender: FDA-Public Use
  Company Number: US-ABBVIE-13P-163-1121100-00

PATIENT
  Age: 20 Year
  Sex: Male

DRUGS (12)
  1. HUMIRA [Suspect]
     Dates: start: 201305
  2. VITAMIN D [Concomitant]
     Indication: PRODUCT USED FOR UNKNOWN INDICATION
  3. LIALDA [Concomitant]
     Indication: PRODUCT USED FOR UNKNOWN INDICATION
     Dosage: 1.2GM DAILY
  4. PREDNISONE [Concomitant]
     Indication: PRODUCT USED FOR UNKNOWN INDICATION
  5. FLAGYL [Concomitant]
     Indication: FISTULA
  6. ZYRTEC [Concomitant]
     Indication: HYPERSENSITIVITY
  7. SINGULAIR [Concomitant]
     Indication: HYPERSENSITIVITY
  8. SINGULAIR [Concomitant]
     Indication: ASTHMA
  9. MULTIVITAMIN [Concomitant]
     Indication: PRODUCT USED FOR UNKNOWN INDICATION
  10. CALCIUM [Concomitant]
     Indication: PRODUCT USED FOR UNKNOWN INDICATION
  11. FISH OIL [Concomitant]
     Indication: PRODUCT USED FOR UNKNOWN INDICATION
  12. B 12 [Concomitant]
     Indication: PRODUCT USED FOR UNKNOWN INDICATION

REACTIONS (3)
  - Injection site erythema [Recovering/Resolving]
  - Injection site vesicles [Recovering/Resolving]
  - Injection site mass [Recovering/Resolving]
